FAERS Safety Report 6294920-3 (Version None)
Quarter: 2009Q3

REPORT INFORMATION
  Report Type: 
  Country: None (occurrence: None)
  Receive Date: 20090731
  Receipt Date: 20090731
  Transmission Date: 20100115
  Serious: Yes (Other)
  Sender: FDA-Public Use
  Company Number: None

PATIENT
  Age: 44 Year
  Sex: Female
  Weight: 77.6 kg

DRUGS (1)
  1. ELETRIPTAN HYDROBROMIDE 40 MG UNKNOWN [Suspect]
     Indication: MIGRAINE
     Dosage: 40 MG, X 1 PRN MIGRAINES, PO, X 10 DOSES
     Route: 048
     Dates: start: 20090710, end: 20090715

REACTIONS (4)
  - BACK PAIN [None]
  - HYPOAESTHESIA [None]
  - PARAESTHESIA [None]
  - TENDERNESS [None]
